FAERS Safety Report 20129111 (Version 3)
Quarter: 2022Q2

REPORT INFORMATION
  Report Type: Spontaneous
  Country: JP (occurrence: JP)
  Receive Date: 20211130
  Receipt Date: 20220602
  Transmission Date: 20220720
  Serious: Yes (Life-Threatening, Hospitalization, Other)
  Sender: FDA-Public Use
  Company Number: JP-AMGEN-JPNSP2021167546

PATIENT
  Age: 68 Year
  Sex: Male
  Weight: 57 kg

DRUGS (16)
  1. BLINCYTO [Suspect]
     Active Substance: BLINATUMOMAB
     Indication: B precursor type acute leukaemia
     Dosage: 9 MICROGRAM, QD (0.51 BOTTLE, 1 TIME/2 DAYS)
     Route: 041
     Dates: start: 20211025, end: 20211031
  2. BLINCYTO [Suspect]
     Active Substance: BLINATUMOMAB
     Dosage: 9 MICROGRAM, QD (0.26 BOTTLE, 1 TIME/2 DAYS)
     Route: 041
     Dates: start: 20211031, end: 20211101
  3. BLINCYTO [Suspect]
     Active Substance: BLINATUMOMAB
     Dosage: 28 MICROGRAM, QD ((0.8 BOTTLE, 1 TIME/2 DAYS))
     Route: 041
     Dates: start: 20211101, end: 20211104
  4. FEBUXOSTAT [Suspect]
     Active Substance: FEBUXOSTAT
     Indication: Product used for unknown indication
     Dosage: UNK
     Route: 065
  5. FILGRASTIM [Concomitant]
     Active Substance: FILGRASTIM
     Indication: Neutropenia
     Dosage: 1 SYRINGE, QD
     Dates: start: 20211029, end: 20211108
  6. DEXAMETHASONE SODIUM PHOSPHATE [Concomitant]
     Active Substance: DEXAMETHASONE SODIUM PHOSPHATE
     Indication: Acute lymphocytic leukaemia
     Dosage: 2.5 BOTTLE, QD
     Dates: start: 20211025, end: 20211115
  7. AMBISOME [Concomitant]
     Active Substance: AMPHOTERICIN B
     Indication: Bronchopulmonary aspergillosis
     Dosage: 150 MILLIGRAM, QD
     Dates: start: 20211025, end: 20211115
  8. AMBISOME [Concomitant]
     Active Substance: AMPHOTERICIN B
     Indication: Fungaemia
  9. YD SOLITA T NO.1 [Concomitant]
     Dosage: 500 MILLILITER, QD
     Dates: start: 20211025, end: 20211115
  10. FULCALIQ [Concomitant]
     Active Substance: AMINO ACIDS\CARBOHYDRATES\ELECTROLYTES NOS\VITAMINS
     Dosage: 1003 MILLILITER, QD
     Dates: start: 20211025, end: 20211115
  11. HUMULIN R [Concomitant]
     Active Substance: INSULIN HUMAN
     Indication: Type 2 diabetes mellitus
     Dosage: 16 IU, QD
     Dates: start: 20211025, end: 20211115
  12. PIPERACILLIN SODIUM\TAZOBACTAM SODIUM [Concomitant]
     Active Substance: PIPERACILLIN SODIUM\TAZOBACTAM SODIUM
     Indication: Neutropenia
     Dosage: 1 BOTTLE, TID
     Route: 042
     Dates: start: 20211025, end: 20211115
  13. POLARAMINE [Concomitant]
     Active Substance: DEXCHLORPHENIRAMINE MALEATE
     Indication: Premedication
     Dosage: 1 TUBE, QD
     Dates: start: 20211025, end: 20211115
  14. Terumo saline [Concomitant]
     Dosage: UNK
     Dates: start: 20211101
  15. SODIUM CHLORIDE [Concomitant]
     Active Substance: SODIUM CHLORIDE
  16. Distilled water [Concomitant]

REACTIONS (9)
  - Renal haemorrhage [Recovered/Resolved]
  - Arterial haemorrhage [Recovered/Resolved]
  - Muscle haemorrhage [Recovered/Resolved]
  - Cytokine release syndrome [Unknown]
  - Fibrin D dimer increased [Recovered/Resolved]
  - Neutrophil count decreased [Recovered/Resolved]
  - Pyrexia [Not Recovered/Not Resolved]
  - Platelet count decreased [Recovering/Resolving]
  - Wrong technique in product usage process [Unknown]

NARRATIVE: CASE EVENT DATE: 20211025
